FAERS Safety Report 23860222 (Version 1)
Quarter: 2024Q2

REPORT INFORMATION
  Report Type: Spontaneous
  Country: US (occurrence: US)
  Receive Date: 20240515
  Receipt Date: 20240515
  Transmission Date: 20240715
  Serious: No
  Sender: FDA-Public Use
  Company Number: US-BRISTOL-MYERS SQUIBB COMPANY-2024-072964

PATIENT
  Age: 81 Year
  Sex: Male

DRUGS (1)
  1. POMALYST [Suspect]
     Active Substance: POMALIDOMIDE
     Indication: End stage renal disease
     Dosage: TAKE 1 CAPSULTE BY MOUTH TWICE WEEKLY FOR 2 WEEKS ON THEN 1 WEEK OFF FOR A 21-DAY CYCLE.
     Route: 048

REACTIONS (8)
  - Irritable bowel syndrome [Unknown]
  - Taste disorder [Unknown]
  - Pain [Unknown]
  - Asthenia [Unknown]
  - Fatigue [Unknown]
  - Insomnia [Unknown]
  - Hypotension [Unknown]
  - Decreased appetite [Unknown]
